FAERS Safety Report 9582527 (Version 2)
Quarter: 2013Q4

REPORT INFORMATION
  Report Type: Spontaneous
  Country: US (occurrence: US)
  Receive Date: 20131002
  Receipt Date: 20131002
  Transmission Date: 20140711
  Serious: No
  Sender: FDA-Public Use
  Company Number: US-AMGEN-USASP2013039836

PATIENT
  Age: 61 Year
  Sex: Male
  Weight: 87.53 kg

DRUGS (12)
  1. ENBREL [Suspect]
     Indication: PRODUCT USED FOR UNKNOWN INDICATION
     Dosage: 50 MG, QWK
     Route: 058
  2. ARTHOTEC [Concomitant]
     Dosage: 50 UNK, UNK
  3. CARVEDILOL [Concomitant]
     Dosage: 3.125 MG, UNK
  4. FOLIC ACID [Concomitant]
     Dosage: 20 MG, UNK
  5. PLAQUENIL                          /00072602/ [Concomitant]
     Dosage: 200 MG, UNK
  6. GLUCOSAMINE [Concomitant]
     Dosage: 1000 MG, UNK
  7. PROSCAR [Concomitant]
     Dosage: 5 MG, UNK
  8. OSCAL 500 [Concomitant]
     Dosage: UNK
  9. D-3 [Concomitant]
     Dosage: 200 UNK, UNK
  10. MULTIVITAMIN                       /00097801/ [Concomitant]
     Dosage: UNK
  11. METHOTREXATE [Concomitant]
     Dosage: 2.5 MG, UNK
  12. LEVOTHYROXINE [Concomitant]
     Dosage: 125 MUG, UNK

REACTIONS (3)
  - Neck mass [Recovered/Resolved]
  - Hypertension [Unknown]
  - Infection [Recovered/Resolved]
